FAERS Safety Report 9849740 (Version 1)
Quarter: 2014Q1

REPORT INFORMATION
  Report Type: Spontaneous
  Country: AU (occurrence: None)
  Receive Date: 20140124
  Receipt Date: 20140124
  Transmission Date: 20141002
  Serious: Yes (Other)
  Sender: FDA-Public Use
  Company Number: VAL_02946_2014

PATIENT
  Sex: Male

DRUGS (12)
  1. METOPROLOL (METOPROLOL - METOPROLOL TARTRATE) [Suspect]
     Indication: PRODUCT USED FOR UNKNOWN INDICATION
     Dosage: 50 MG, DF
  2. ISOSORBIDE MONONITRATE [Suspect]
     Indication: PRODUCT USED FOR UNKNOWN INDICATION
  3. AMLODIPINE (AMLODIPINE) [Suspect]
     Indication: PRODUCT USED FOR UNKNOWN INDICATION
     Dosage: 5 MG, DF
  4. FUROSEMIDE (FUROSEMIDE) [Suspect]
     Indication: PRODUCT USED FOR UNKNOWN INDICATION
     Dosage: 20 MG, DF
  5. CLOPIDOGREL (CLOPIDOGREL) [Suspect]
     Indication: PRODUCT USED FOR UNKNOWN INDICATION
  6. PERINDOPRIL (PERINDOPRIL) [Suspect]
     Indication: PRODUCT USED FOR UNKNOWN INDICATION
     Dosage: 8 MG, DF
  7. PERINDOPRIL APO [Suspect]
     Indication: PRODUCT USED FOR UNKNOWN INDICATION
  8. XALATAN [Concomitant]
  9. NITROLINGUAL [Concomitant]
  10. ASTRIX [Concomitant]
  11. ASPIRIN [Concomitant]
  12. ISOMOT [Concomitant]

REACTIONS (6)
  - Lethargy [None]
  - Somnolence [None]
  - Skin discolouration [None]
  - Syncope [None]
  - General physical health deterioration [None]
  - Feeling abnormal [None]
